FAERS Safety Report 6222643-5 (Version None)
Quarter: 2009Q2

REPORT INFORMATION
  Report Type: 
  Country: None (occurrence: None)
  Receive Date: 20090609
  Receipt Date: 20090609
  Transmission Date: 20091009
  Serious: Yes (Hospitalization)
  Sender: FDA-Public Use
  Company Number: None

PATIENT
  Age: 50 Year
  Sex: Female

DRUGS (3)
  1. METHOTREXATE (METHOTREXATE) [Suspect]
     Dosage: 20 MG, 1 WEEK, SUBCUTANEOUS 120 MG (1)
     Route: 058
     Dates: start: 20090331, end: 20090331
  2. METHOTREXATE (METHOTREXATE) [Suspect]
     Dosage: 20 MG, 1 WEEK, SUBCUTANEOUS 120 MG (1)
     Route: 058
     Dates: start: 20090331, end: 20090331
  3. ENBREL [Suspect]
     Indication: RHEUMATOID ARTHRITIS
     Dosage: 50 MG, 1 WEEK, SUBCUTANEOUS
     Route: 058
     Dates: start: 20080301, end: 20090331

REACTIONS (4)
  - CONDITION AGGRAVATED [None]
  - EMOTIONAL DISTRESS [None]
  - INTENTIONAL OVERDOSE [None]
  - NASAL CONGESTION [None]
